FAERS Safety Report 4465664-5 (Version None)
Quarter: 2004Q3

REPORT INFORMATION
  Report Type: 
  Country: None (occurrence: None)
  Receive Date: 20040917
  Receipt Date: 20040805
  Transmission Date: 20050211
  Serious: No
  Sender: FDA-Public Use
  Company Number: US-JNJFOC-20040802091

PATIENT
  Age: 21 Year
  Sex: Female
  Weight: 56.6996 kg

DRUGS (3)
  1. ORTHO EVRA [Suspect]
     Indication: CONTRACEPTION
     Dosage: 1 DOSE(S) 3 IN 4 WEEK, TRANSDERMAL
     Route: 062
  2. PRENATAL VITAMINS (PRENATAL VITAMINS) [Concomitant]
  3. FOLIC ACID [Concomitant]

REACTIONS (3)
  - HOT FLUSH [None]
  - METRORRHAGIA [None]
  - VOMITING [None]
